FAERS Safety Report 6191791-0 (Version None)
Quarter: 2009Q2

REPORT INFORMATION
  Report Type: 
  Country: None (occurrence: None)
  Receive Date: 20090515
  Receipt Date: 20090514
  Transmission Date: 20091009
  Serious: Yes (Life-Threatening, Hospitalization, Other)
  Sender: FDA-Public Use
  Company Number: PHHY2009FR13834

PATIENT
  Sex: Female
  Weight: 47.2 kg

DRUGS (5)
  1. EXELON [Suspect]
     Indication: DEMENTIA ALZHEIMER'S TYPE
     Dosage: 4.6 MG, QD
     Route: 062
     Dates: start: 20081101, end: 20090204
  2. EXELON [Interacting]
     Dosage: 9.5 MG, QD
     Route: 062
     Dates: start: 20090205
  3. TENORMIN [Interacting]
     Indication: HYPERTENSION
     Dosage: UNK
     Dates: end: 20090206
  4. LEVOTHYROX [Concomitant]
     Indication: HYPOTHYROIDISM
     Dosage: 75 MG
  5. DEPAMIDE [Concomitant]
     Dosage: UNK

REACTIONS (5)
  - ELECTROCARDIOGRAM ABNORMAL [None]
  - HEART RATE DECREASED [None]
  - HYPOTENSION [None]
  - SHOCK [None]
  - SINUS ARREST [None]
